FAERS Safety Report 20156787 (Version 1)
Quarter: 2021Q4

REPORT INFORMATION
  Report Type: Report from Study
  Country: US (occurrence: US)
  Receive Date: 20211207
  Receipt Date: 20211207
  Transmission Date: 20220303
  Serious: Yes (Other)
  Sender: FDA-Public Use
  Company Number: US-KYOWAKIRIN-2021BKK020260

PATIENT

DRUGS (2)
  1. CRYSVITA [Suspect]
     Active Substance: BUROSUMAB-TWZA
     Indication: Hereditary hypophosphataemic rickets
     Dosage: STRENGTH OF 20 AND 30 MG/ML COMBINED TO ACHEIVE DOSE OF 80MG, EVERY 28 DAYS
     Route: 058
     Dates: start: 20191203
  2. CRYSVITA [Suspect]
     Active Substance: BUROSUMAB-TWZA
     Indication: Hereditary hypophosphataemic rickets
     Dosage: STRENGTH OF 20 AND 30 MG/ML COMBINED TO ACHEIVE DOSE OF 80MG, EVERY 28 DAYS
     Route: 058
     Dates: start: 20191203

REACTIONS (1)
  - Kidney infection [Unknown]

NARRATIVE: CASE EVENT DATE: 20211101
